FAERS Safety Report 19679824 (Version 1)
Quarter: 2021Q3

REPORT INFORMATION
  Report Type: Spontaneous
  Country: US (occurrence: US)
  Receive Date: 20210810
  Receipt Date: 20210810
  Transmission Date: 20211014
  Serious: Yes (Other)
  Sender: FDA-Public Use
  Company Number: None

PATIENT
  Age: 34 Year
  Sex: Female
  Weight: 96.75 kg

DRUGS (4)
  1. FISH OIL [Concomitant]
     Active Substance: FISH OIL
  2. ZOLOFT [Suspect]
     Active Substance: SERTRALINE HYDROCHLORIDE
     Indication: ANXIETY
     Dosage: ?          QUANTITY:45 TABLET(S);?
     Dates: start: 20210809
  3. LEXAPRO [Suspect]
     Active Substance: ESCITALOPRAM OXALATE
  4. PRENATAL [Concomitant]
     Active Substance: VITAMINS

REACTIONS (1)
  - Drug interaction [None]

NARRATIVE: CASE EVENT DATE: 20210809
